FAERS Safety Report 5569365-1 (Version None)
Quarter: 2007Q4

REPORT INFORMATION
  Report Type: 
  Country: None (occurrence: None)
  Receive Date: 20071220
  Receipt Date: 20071218
  Transmission Date: 20080405
  Serious: Yes (Hospitalization)
  Sender: FDA-Public Use
  Company Number: FR-ELI_LILLY_AND_COMPANY-FR200711002492

PATIENT
  Age: 71 Year
  Sex: Female
  Weight: 60 kg

DRUGS (8)
  1. FORTEO [Suspect]
     Indication: OSTEOPOROSIS
     Dosage: 20 UG, DAILY (1/D)
     Route: 058
     Dates: start: 20070911, end: 20071031
  2. FORTEO [Suspect]
     Dosage: 20 UG, DAILY (1/D)
     Route: 058
     Dates: start: 20071108
  3. INDAPAMIDE [Concomitant]
     Indication: HYPERTENSION
     Dosage: 1.5 MG, DAILY (1/D)
     Route: 048
     Dates: start: 20070901
  4. PARAPSYLLIUM [Concomitant]
     Indication: CONSTIPATION
     Dosage: 2 D/F, DAILY (1/D)
     Route: 048
     Dates: start: 20070101
  5. VOGALENE [Concomitant]
     Indication: NAUSEA
     Dosage: 3 D/F, DAILY (1/D)
     Route: 048
     Dates: start: 20070101
  6. TRAMADOL HCL [Concomitant]
     Indication: PAIN
     Route: 048
  7. OROCAL D(3) [Concomitant]
     Indication: OSTEOPOROSIS
     Dosage: 2 D/F, EACH EVENING
     Route: 048
     Dates: start: 20000101
  8. PAROXETINE [Concomitant]
     Indication: DEPRESSION
     Dosage: 20 MG, DAILY (1/D)
     Route: 048
     Dates: start: 20070101

REACTIONS (1)
  - GASTROENTERITIS [None]
